FAERS Safety Report 17194178 (Version 1)
Quarter: 2019Q4

REPORT INFORMATION
  Report Type: Spontaneous
  Country: JP (occurrence: JP)
  Receive Date: 20191224
  Receipt Date: 20191224
  Transmission Date: 20200122
  Serious: Yes (Other)
  Sender: FDA-Public Use
  Company Number: JP-SA-2019SA352082

PATIENT
  Age: 22 Year
  Sex: Female

DRUGS (10)
  1. THYMOGLOBULINE [Suspect]
     Active Substance: LAPINE T-LYMPHOCYTE IMMUNE GLOBULIN
     Indication: PREMEDICATION
     Dosage: 2.5 MG/KG IN TOTAL, FROM DAY -3 TO DAY -1
     Route: 041
     Dates: start: 2014, end: 2014
  2. FLUDARA [Suspect]
     Active Substance: FLUDARABINE PHOSPHATE
     Indication: ACUTE MYELOID LEUKAEMIA
     Dosage: 30 MG/M2, FROM DAY -10 TO DAY -5
     Route: 042
     Dates: start: 2014, end: 2014
  3. CYTARABINE. [Concomitant]
     Active Substance: CYTARABINE
     Indication: PREMEDICATION
     Dosage: UNK
     Route: 065
     Dates: start: 2009
  4. MELPHALAN. [Concomitant]
     Active Substance: MELPHALAN
     Indication: PREMEDICATION
     Dosage: 70 MG/M2, ON DAY -6 AND DAY -5
     Route: 065
     Dates: start: 2014, end: 2014
  5. TACROLIMUS MONOHYDRATE [Concomitant]
     Active Substance: TACROLIMUS
     Indication: PROPHYLAXIS
     Dosage: 10-12 NG/ML, FROM DAY -3
     Route: 065
     Dates: start: 2014
  6. CYTARABINE. [Concomitant]
     Active Substance: CYTARABINE
     Indication: ACUTE MYELOID LEUKAEMIA
     Dosage: 2 G/M2, FROM DAY -10 TO DAY -7
     Route: 065
     Dates: start: 2014, end: 2014
  7. METHYLPREDNISOLONE. [Concomitant]
     Active Substance: METHYLPREDNISOLONE
     Indication: PROPHYLAXIS
     Dosage: 1 MG/KG/DAY, FROM DAY 0
     Route: 065
     Dates: start: 2014
  8. CYTARABINE. [Concomitant]
     Active Substance: CYTARABINE
     Dosage: UNK
     Route: 065
     Dates: start: 2011
  9. FLUDARA [Suspect]
     Active Substance: FLUDARABINE PHOSPHATE
     Indication: PREMEDICATION
     Dosage: UNK
     Route: 042
     Dates: start: 2011
  10. CYTARABINE. [Concomitant]
     Active Substance: CYTARABINE
     Dosage: UNK
     Route: 065
     Dates: start: 2010

REACTIONS (12)
  - Coagulopathy [Recovered/Resolved]
  - Refractoriness to platelet transfusion [Recovered/Resolved]
  - Red cell fragmentation syndrome [Recovered/Resolved]
  - Vitreous floaters [Unknown]
  - Haptoglobin decreased [Recovered/Resolved]
  - Fibrin D dimer increased [Recovered/Resolved]
  - Thrombotic microangiopathy [Recovered/Resolved]
  - Haemoglobin decreased [Recovered/Resolved]
  - Haemolytic anaemia [Recovered/Resolved]
  - Cytomegalovirus chorioretinitis [Unknown]
  - Blood lactate dehydrogenase increased [Recovered/Resolved]
  - Renal impairment [Recovered/Resolved]

NARRATIVE: CASE EVENT DATE: 2014
